FAERS Safety Report 17221681 (Version 1)
Quarter: 2020Q1

REPORT INFORMATION
  Report Type: Spontaneous
  Country: CA (occurrence: CA)
  Receive Date: 20200101
  Receipt Date: 20200101
  Transmission Date: 20200409
  Serious: Yes (Hospitalization, Other)
  Sender: FDA-Public Use
  Company Number: CA-ABBVIE-19K-028-3214862-00

PATIENT
  Age: 68 Year
  Sex: Female
  Weight: 96 kg

DRUGS (5)
  1. DILAUDID [Concomitant]
     Active Substance: HYDROMORPHONE HYDROCHLORIDE
     Indication: PAIN
  2. HYDROCODONE [Concomitant]
     Active Substance: HYDROCODONE
     Indication: PAIN
  3. HUMIRA [Suspect]
     Active Substance: ADALIMUMAB
     Indication: PSORIASIS
     Dosage: CYCLICAL
     Route: 058
  4. METHOTREXATE. [Suspect]
     Active Substance: METHOTREXATE
     Indication: PRODUCT USED FOR UNKNOWN INDICATION
     Route: 065
  5. CESAMET [Concomitant]
     Active Substance: NABILONE
     Indication: PRODUCT USED FOR UNKNOWN INDICATION

REACTIONS (7)
  - Tooth disorder [Recovered/Resolved]
  - Pneumonia [Recovered/Resolved]
  - Breast pain [Recovered/Resolved]
  - Pulmonary mass [Recovered/Resolved]
  - Asthma [Recovered/Resolved]
  - Respiratory tract congestion [Recovered/Resolved]
  - Cystitis [Recovered/Resolved]
